FAERS Safety Report 6241170-2 (Version None)
Quarter: 2009Q2

REPORT INFORMATION
  Report Type: 
  Country: None (occurrence: None)
  Receive Date: 20090623
  Receipt Date: 20090608
  Transmission Date: 20091009
  Serious: Yes (Death)
  Sender: FDA-Public Use
  Company Number: JP-BRISTOL-MYERS SQUIBB COMPANY-14655203

PATIENT
  Age: 64 Year
  Sex: Female

DRUGS (2)
  1. ERBITUX [Suspect]
     Indication: RECTAL CANCER
     Route: 042
     Dates: start: 20090529, end: 20090529
  2. GABAPEN [Suspect]
     Dosage: 600MG 16MAY09-18MAY09 3 DAYS;400MG BID 19MAY09-29MAY09(10D)
     Route: 048
     Dates: start: 20090515, end: 20090529

REACTIONS (2)
  - ANURIA [None]
  - CARDIAC FAILURE [None]
